FAERS Safety Report 7443222-8 (Version None)
Quarter: 2011Q2

REPORT INFORMATION
  Report Type: 
  Country: None (occurrence: None)
  Receive Date: 20110428
  Receipt Date: 20110419
  Transmission Date: 20111010
  Serious: Yes (Hospitalization)
  Sender: FDA-Public Use
  Company Number: B0714097B

PATIENT
  Sex: Female

DRUGS (7)
  1. FOLIC ACID [Concomitant]
     Dosage: .5MG PER DAY
     Route: 048
     Dates: start: 20110419
  2. ZOLPIDEM [Concomitant]
     Route: 048
     Dates: start: 20110419
  3. IFOSFAMIDE [Suspect]
     Indication: NEOPLASM MALIGNANT
     Route: 042
     Dates: start: 20110301, end: 20110408
  4. KALIUMCHLORIDE [Concomitant]
     Dosage: 600MG THREE TIMES PER DAY
     Route: 048
     Dates: start: 20110419
  5. NIFEDIPINE [Concomitant]
     Dosage: 30MG PER DAY
     Route: 048
     Dates: start: 20110419
  6. METOCLOPRAMIDE [Concomitant]
     Dosage: 10MG THREE TIMES PER DAY
     Dates: start: 20110419
  7. PAZOPANIB [Suspect]
     Indication: NEOPLASM MALIGNANT
     Route: 048
     Dates: start: 20110308

REACTIONS (2)
  - HYPOKALAEMIA [None]
  - DYSPNOEA [None]
